FAERS Safety Report 9305154 (Version 1)
Quarter: 2013Q2

REPORT INFORMATION
  Report Type: Spontaneous
  Country: US (occurrence: None)
  Receive Date: 20130522
  Receipt Date: 20130522
  Transmission Date: 20140414
  Serious: Yes (Life-Threatening)
  Sender: FDA-Public Use
  Company Number: None

PATIENT
  Sex: Male

DRUGS (1)
  1. ALBUMIN [Suspect]
     Route: 042
     Dates: start: 20130517, end: 20130517

REACTIONS (7)
  - Tachycardia [None]
  - Electrocardiogram ST segment depression [None]
  - Blood pressure diastolic decreased [None]
  - Chills [None]
  - Dyspnoea [None]
  - Wheezing [None]
  - Hypersensitivity [None]
